FAERS Safety Report 8131897-X (Version None)
Quarter: 2012Q1

REPORT INFORMATION
  Report Type: 
  Country: None (occurrence: None)
  Receive Date: 20120207
  Receipt Date: 20120123
  Transmission Date: 20120608
  Serious: Yes (Hospitalization, Other)
  Sender: FDA-Public Use
  Company Number: MCA-N-12-003

PATIENT
  Age: 25 Year
  Sex: Female
  Weight: 60 kg

DRUGS (1)
  1. AMLODIPINE [Suspect]
     Dosage: 400 MG; X1; PO
     Route: 048

REACTIONS (10)
  - LETHARGY [None]
  - PULMONARY ARTERIAL WEDGE PRESSURE INCREASED [None]
  - SINUS TACHYCARDIA [None]
  - FLAT AFFECT [None]
  - CONFUSIONAL STATE [None]
  - HYPERDYNAMIC LEFT VENTRICLE [None]
  - SHOCK [None]
  - HYPOTENSION [None]
  - OVERDOSE [None]
  - BLOOD PH DECREASED [None]
